FAERS Safety Report 6547411-6 (Version None)
Quarter: 2010Q1

REPORT INFORMATION
  Report Type: 
  Country: None (occurrence: None)
  Receive Date: 20100122
  Receipt Date: 20100119
  Transmission Date: 20100710
  Serious: Yes (Death, Other)
  Sender: FDA-Public Use
  Company Number: PHHY2010DE02667

PATIENT
  Sex: Female
  Weight: 84 kg

DRUGS (3)
  1. ZOLEDRONATE T29581+ [Suspect]
     Indication: BONE DISORDER
     Dosage: 4 MG EVERY 4 WEEKS
     Route: 042
     Dates: start: 20090908, end: 20091102
  2. FASLODEX [Concomitant]
     Dosage: 250 MG, UNK
     Route: 030
     Dates: start: 20090520, end: 20091127
  3. PALLADONE [Concomitant]
     Dosage: 4 MG, UNK
     Route: 048

REACTIONS (3)
  - LUNG DISORDER [None]
  - MALIGNANT NEOPLASM PROGRESSION [None]
  - PLEURAL EFFUSION [None]
